FAERS Safety Report 15275983 (Version 3)
Quarter: 2018Q3

REPORT INFORMATION
  Report Type: Report from Study
  Country: GB (occurrence: GB)
  Receive Date: 20180814
  Receipt Date: 20180905
  Transmission Date: 20181010
  Serious: Yes (Hospitalization)
  Sender: FDA-Public Use
  Company Number: GB-ROCHE-2157601

PATIENT
  Age: 51 Year
  Sex: Female
  Weight: 49.9 kg

DRUGS (9)
  1. CHLORPHENIRAMINE. [Concomitant]
     Active Substance: CHLORPHENIRAMINE
     Indication: RASH
     Route: 048
     Dates: start: 20180721, end: 20180724
  2. CODEIN [Concomitant]
     Active Substance: CODEINE
     Indication: PAIN
     Route: 048
     Dates: start: 20180717, end: 20180724
  3. ATEZOLIZUMAB. [Suspect]
     Active Substance: ATEZOLIZUMAB
     Indication: BREAST CANCER
     Dosage: LAST DOSE: 03/JUL/2018
     Route: 042
     Dates: start: 20180703
  4. PARACETAMOL [Concomitant]
     Active Substance: ACETAMINOPHEN
     Route: 065
  5. CODEIN [Concomitant]
     Active Substance: CODEINE
     Indication: PYREXIA
  6. METOCLOPRAMIDE. [Concomitant]
     Active Substance: METOCLOPRAMIDE
     Indication: NAUSEA
     Route: 048
     Dates: start: 20180724, end: 20180815
  7. PARACETAMOL [Concomitant]
     Active Substance: ACETAMINOPHEN
     Indication: INFLUENZA LIKE ILLNESS
     Dosage: 500 MG TO 1 G
     Route: 048
  8. SENNA SOFT [Concomitant]
     Route: 048
     Dates: start: 20180717, end: 20180724
  9. TAZOCIN [Concomitant]
     Active Substance: PIPERACILLIN SODIUM\TAZOBACTAM SODIUM
     Indication: SEPSIS
     Route: 042
     Dates: start: 20180717, end: 20180720

REACTIONS (3)
  - Autoimmune disorder [Recovered/Resolved with Sequelae]
  - Pyrexia [Unknown]
  - Rash [Unknown]

NARRATIVE: CASE EVENT DATE: 20180716
